FAERS Safety Report 17616725 (Version 4)
Quarter: 2020Q2

REPORT INFORMATION
  Report Type: Report from Study
  Country: JP (occurrence: JP)
  Receive Date: 20200402
  Receipt Date: 20200622
  Transmission Date: 20200713
  Serious: Yes (Other)
  Sender: FDA-Public Use
  Company Number: JP-OTSUKA-2020_008493

PATIENT
  Age: 10 Year
  Sex: Female
  Weight: 24.6 kg

DRUGS (11)
  1. CALONAL [Concomitant]
     Active Substance: ACETAMINOPHEN
     Indication: PAIN
     Dosage: 400 MG, PRN
     Route: 048
  2. GLYCYRON [Concomitant]
     Indication: HEPATIC FUNCTION ABNORMAL
     Dosage: 3 DF, DAILY DOSE (DIVIDED INTO THREE DOSES)
     Route: 048
     Dates: start: 20200221
  3. MAGMITT [Concomitant]
     Active Substance: MAGNESIUM OXIDE
     Indication: CONSTIPATION
     Dosage: 330 MG, PRN
     Route: 048
  4. DECITABINE. [Suspect]
     Active Substance: DECITABINE
     Indication: NEUROBLASTOMA
     Dosage: 9 MG, DAILY DOSE
     Route: 041
     Dates: start: 20200305, end: 20200309
  5. SOLU-CORTEF [Concomitant]
     Active Substance: HYDROCORTISONE SODIUM SUCCINATE
     Indication: PRODUCT USED FOR UNKNOWN INDICATION
     Dosage: UNK
     Route: 065
     Dates: start: 20200325
  6. ACELIO [Concomitant]
     Active Substance: ACETAMINOPHEN
     Indication: PAIN
     Dosage: 1000 MG, PRN
     Route: 042
  7. TEICOPLANIN [Concomitant]
     Active Substance: TEICOPLANIN
     Indication: INFECTION
     Dosage: 500 MG, BID
     Route: 042
     Dates: start: 20200318, end: 20200324
  8. TAMIBAROTENE [Suspect]
     Active Substance: TAMIBAROTENE
     Indication: NEUROBLASTOMA
     Dosage: 11 MG, DAILY DOSE
     Route: 048
     Dates: start: 20200310, end: 20200312
  9. CARBOCISTEINE [Concomitant]
     Active Substance: CARBOCYSTEINE
     Indication: BRONCHITIS CHRONIC
     Dosage: 500 MG, DAILY DOSE
     Route: 048
  10. DAIPHEN [Concomitant]
     Active Substance: SULFAMETHOXAZOLE\TRIMETHOPRIM
     Indication: ANTIFUNGAL PROPHYLAXIS
     Dosage: 1 DF, QD
     Route: 048
  11. AZACTAM [Concomitant]
     Active Substance: AZTREONAM
     Indication: PRODUCT USED FOR UNKNOWN INDICATION
     Dosage: UNK
     Route: 065
     Dates: start: 20200321, end: 20200325

REACTIONS (1)
  - Immunisation reaction [Recovered/Resolved]

NARRATIVE: CASE EVENT DATE: 20200327
